FAERS Safety Report 9514516 (Version 2)
Quarter: 2014Q1

REPORT INFORMATION
  Report Type: Spontaneous
  Country: US (occurrence: US)
  Receive Date: 20130911
  Receipt Date: 20140129
  Transmission Date: 20141002
  Serious: No
  Sender: FDA-Public Use
  Company Number: US-009507513-1309USA003723

PATIENT
  Age: 83 Year
  Sex: Male

DRUGS (4)
  1. PROVENTIL [Suspect]
     Indication: CHRONIC OBSTRUCTIVE PULMONARY DISEASE
     Dosage: 2 PUFFS EVERY 4 HOURS AS NEEDED.
     Route: 055
     Dates: start: 20130903, end: 20130904
  2. TUDORZA [Concomitant]
  3. PULMICORT [Concomitant]
  4. ADVAIR [Concomitant]
     Dosage: UNK

REACTIONS (7)
  - Abasia [Recovered/Resolved]
  - Feeling jittery [Recovered/Resolved]
  - Incorrect dose administered [Unknown]
  - Tremor [Recovered/Resolved]
  - Nervousness [Recovered/Resolved]
  - Drug dose omission [Unknown]
  - Product quality issue [Unknown]
